FAERS Safety Report 12162696 (Version 3)
Quarter: 2016Q1

REPORT INFORMATION
  Report Type: Spontaneous
  Country: US (occurrence: US)
  Receive Date: 20160309
  Receipt Date: 20160318
  Transmission Date: 20160526
  Serious: Yes (Hospitalization)
  Sender: FDA-Public Use
  Company Number: US-UNITED THERAPEUTICS-UNT-2016-003594

PATIENT
  Age: 67 Year
  Sex: Female
  Weight: 50.79 kg

DRUGS (4)
  1. TRACLEER [Concomitant]
     Active Substance: BOSENTAN
     Indication: PRODUCT USED FOR UNKNOWN INDICATION
  2. REMODULIN [Suspect]
     Active Substance: TREPROSTINIL
     Indication: PULMONARY ARTERIAL HYPERTENSION
     Dosage: 0.022 ?G/KG, CONTINUING
     Route: 058
     Dates: start: 20141103
  3. REVATIO [Concomitant]
     Active Substance: SILDENAFIL CITRATE
     Indication: PRODUCT USED FOR UNKNOWN INDICATION
  4. TYVASO [Suspect]
     Active Substance: TREPROSTINIL
     Indication: PULMONARY ARTERIAL HYPERTENSION
     Dosage: 6-54 ?G, QID
     Dates: start: 20150211

REACTIONS (6)
  - Acute respiratory failure [Unknown]
  - Bronchitis [Unknown]
  - Nasal congestion [Unknown]
  - Respiratory syncytial virus infection [Unknown]
  - Lung infection [Unknown]
  - Product use issue [Unknown]

NARRATIVE: CASE EVENT DATE: 201602
